FAERS Safety Report 7702314-6 (Version None)
Quarter: 2011Q3

REPORT INFORMATION
  Report Type: 
  Country: None (occurrence: None)
  Receive Date: 20110822
  Receipt Date: 20110811
  Transmission Date: 20111222
  Serious: Yes (Other)
  Sender: FDA-Public Use
  Company Number: US-ASTRAZENECA-2011SE48728

PATIENT
  Age: 58 Year
  Sex: Male

DRUGS (1)
  1. NEXIUM [Suspect]
     Route: 048

REACTIONS (5)
  - MULTI-ORGAN FAILURE [None]
  - DYSPHAGIA [None]
  - MALAISE [None]
  - DRUG DOSE OMISSION [None]
  - CARDIAC FAILURE [None]
